FAERS Safety Report 8483195-2 (Version None)
Quarter: 2012Q3

REPORT INFORMATION
  Report Type: 
  Country: None (occurrence: None)
  Receive Date: 20120702
  Receipt Date: 20120622
  Transmission Date: 20120928
  Serious: Yes (Hospitalization)
  Sender: FDA-Public Use
  Company Number: JP-ABBOTT-12P-087-0950507-00

PATIENT
  Age: 16 Year
  Sex: Male

DRUGS (7)
  1. AZATHIOPRINE [Concomitant]
     Indication: CROHN'S DISEASE
     Route: 048
  2. CLOSTRIDIUM BUTYRICUM [Concomitant]
     Indication: CROHN'S DISEASE
     Route: 048
  3. POLAPREZINC [Concomitant]
     Indication: CROHN'S DISEASE
     Route: 048
  4. MESALAMINE [Concomitant]
     Indication: CROHN'S DISEASE
     Route: 048
  5. HUMIRA [Suspect]
     Indication: CROHN'S DISEASE
     Route: 058
     Dates: start: 20120518, end: 20120518
  6. HUMIRA [Suspect]
     Dates: start: 20120601, end: 20120601
  7. HUMIRA [Suspect]
     Dates: start: 20120627

REACTIONS (1)
  - ANAL ABSCESS [None]
